FAERS Safety Report 10403507 (Version 1)
Quarter: 2014Q3

REPORT INFORMATION
  Report Type: Spontaneous
  Country: US (occurrence: None)
  Receive Date: 20140821
  Receipt Date: 20140821
  Transmission Date: 20150326
  Serious: No
  Sender: FDA-Public Use
  Company Number: None

PATIENT
  Age: 67 Year
  Sex: Female

DRUGS (19)
  1. LEVOTHYROXINE [Concomitant]
     Active Substance: LEVOTHYROXINE
  2. FLAXSEED [Concomitant]
     Active Substance: FLAX SEED
  3. FOLIC ACID. [Concomitant]
     Active Substance: FOLIC ACID
  4. BIOTIN [Concomitant]
     Active Substance: BIOTIN
  5. ATENOLOL. [Concomitant]
     Active Substance: ATENOLOL
  6. BUTRANS [Suspect]
     Active Substance: BUPRENORPHINE
     Indication: PAIN
     Dosage: 5 MCG 4 PATCHES, 1 PATCH 7 DAYS 24 HRS, PATCH
     Dates: start: 20140725, end: 20140729
  7. GABAPENTIN. [Concomitant]
     Active Substance: GABAPENTIN
  8. HYDROCODONE-ACETAMENOPHEN [Concomitant]
  9. CARISOPRODOL. [Concomitant]
     Active Substance: CARISOPRODOL
  10. VIACTIVE D [Concomitant]
  11. CUL-VILE [Concomitant]
  12. VAGIFEM [Concomitant]
     Active Substance: ESTRADIOL
  13. TESTOSTERONE. [Concomitant]
     Active Substance: TESTOSTERONE
  14. ROPINIROLE. [Concomitant]
     Active Substance: ROPINIROLE
  15. CELEBRIX [Concomitant]
  16. ASPIRIN. [Concomitant]
     Active Substance: ASPIRIN
  17. LISINOPRIL. [Concomitant]
     Active Substance: LISINOPRIL
  18. NEXIUM [Concomitant]
     Active Substance: ESOMEPRAZOLE MAGNESIUM
  19. TRIAMTERON [Concomitant]

REACTIONS (7)
  - Arthralgia [None]
  - Dyspnoea [None]
  - Haemorrhage [None]
  - Headache [None]
  - Peripheral swelling [None]
  - Joint swelling [None]
  - Pain in extremity [None]

NARRATIVE: CASE EVENT DATE: 20140729
